FAERS Safety Report 7548506-0 (Version None)
Quarter: 2011Q2

REPORT INFORMATION
  Report Type: 
  Country: None (occurrence: None)
  Receive Date: 20110615
  Receipt Date: 20110105
  Transmission Date: 20111010
  Serious: Yes (Hospitalization)
  Sender: FDA-Public Use
  Company Number: US-BAYER-201029521NA

PATIENT
  Age: 52 Year
  Sex: Female
  Weight: 74.83 kg

DRUGS (5)
  1. YAZ [Suspect]
     Indication: MENSTRUATION IRREGULAR
     Dosage: UNK UNK, UNK
     Route: 048
     Dates: start: 20070620, end: 20080903
  2. ACETAMINOPHEN [Concomitant]
  3. MULTI-VITAMIN [Concomitant]
  4. YASMIN [Suspect]
     Indication: MENSTRUATION IRREGULAR
     Dosage: UNK UNK, UNK
     Route: 048
     Dates: start: 20060423, end: 20070521
  5. NEXIUM [Concomitant]

REACTIONS (6)
  - CHEST PAIN [None]
  - HYPERHIDROSIS [None]
  - DIZZINESS [None]
  - MYOCARDIAL INFARCTION [None]
  - PAIN IN EXTREMITY [None]
  - CORONARY ARTERY THROMBOSIS [None]
